FAERS Safety Report 9268853 (Version 1)
Quarter: 2013Q2

REPORT INFORMATION
  Report Type: Spontaneous
  Country: FR (occurrence: FR)
  Receive Date: 20130503
  Receipt Date: 20130503
  Transmission Date: 20140414
  Serious: Yes (Hospitalization, Other)
  Sender: FDA-Public Use
  Company Number: PHHY2012FR024546

PATIENT
  Age: 48 Year
  Sex: Male

DRUGS (12)
  1. CARDIOXANE [Suspect]
     Indication: DIFFUSE LARGE B-CELL LYMPHOMA
     Dosage: 6 DF, QD (3000 MG 1 TIME PER 1 CYCLE)
     Dates: start: 20100205, end: 20100327
  2. DOXORUBICIN EBEWE [Suspect]
     Indication: DIFFUSE LARGE B-CELL LYMPHOMA
     Dosage: 151 MG, UNK
     Route: 042
     Dates: start: 20100205, end: 20100327
  3. MABTHERA [Suspect]
     Indication: DIFFUSE LARGE B-CELL LYMPHOMA
     Dosage: 1 DF, QD
     Route: 042
     Dates: start: 20100205, end: 20100323
  4. HOLOXAN [Suspect]
     Indication: DIFFUSE LARGE B-CELL LYMPHOMA
     Dosage: UNK UKN, UNK
     Route: 042
     Dates: start: 20100531
  5. ETOPOPHOS [Suspect]
     Indication: DIFFUSE LARGE B-CELL LYMPHOMA
     Dosage: 1 DF, QD
     Route: 042
     Dates: start: 20100531
  6. ENDOXAN [Suspect]
     Indication: DIFFUSE LARGE B-CELL LYMPHOMA
     Dosage: 10 MG, QD
     Dates: start: 20100205, end: 20100327
  7. ARACYTINE [Suspect]
     Dosage: UNK UKN, UNK
  8. BLEOMYCINE [Suspect]
     Indication: DIFFUSE LARGE B-CELL LYMPHOMA
     Dosage: 10 MG, UNK
     Dates: start: 20100205, end: 20100327
  9. METHOTREXATE [Suspect]
     Indication: DIFFUSE LARGE B-CELL LYMPHOMA
     Dosage: 6200 MG, UNK
     Dates: start: 20100429
  10. ELDISINE [Suspect]
     Dosage: UNK UKN, UNK
  11. PREDNISONE [Concomitant]
     Dosage: UNK UKN, UNK
  12. CHEMOTHERAPEUTICS NOS [Concomitant]
     Dosage: UNK UKN, UNK

REACTIONS (3)
  - Acute myelomonocytic leukaemia [Recovering/Resolving]
  - Second primary malignancy [Recovering/Resolving]
  - Pancytopenia [Not Recovered/Not Resolved]
